FAERS Safety Report 8886160 (Version 1)
Quarter: 2012Q4

REPORT INFORMATION
  Report Type: 
  Country: IN (occurrence: IN)
  Receive Date: 20121105
  Receipt Date: 20121105
  Transmission Date: 20130627
  Serious: Yes (Hospitalization)
  Sender: FDA-Public Use
  Company Number: IN-ASTRAZENECA-2012SE81910

PATIENT
  Age: 85 Year
  Sex: Female
  Weight: 60 kg

DRUGS (6)
  1. BRILINTA [Suspect]
     Indication: ACUTE CORONARY SYNDROME
     Route: 048
     Dates: start: 20121014, end: 20121025
  2. ASPIRIN [Suspect]
  3. METOPROLOL TARTRATE [Concomitant]
  4. ROSUVASTATIN [Concomitant]
  5. IMDUR [Concomitant]
  6. CREMAFFIN SYP. [Concomitant]

REACTIONS (1)
  - Haemoglobin decreased [Recovered/Resolved]
